FAERS Safety Report 20338864 (Version 5)
Quarter: 2022Q4

REPORT INFORMATION
  Report Type: Report from Study
  Country: GB (occurrence: GB)
  Receive Date: 20220116
  Receipt Date: 20221122
  Transmission Date: 20230113
  Serious: Yes (Death, Hospitalization, Other)
  Sender: FDA-Public Use
  Company Number: GB-ABBVIE-22K-167-4233773-00

PATIENT
  Age: 50 Year
  Sex: Male
  Weight: 142 kg

DRUGS (11)
  1. SKYRIZI [Suspect]
     Active Substance: RISANKIZUMAB-RZAA
     Indication: Psoriasis
     Route: 058
     Dates: start: 20210129, end: 20220422
  2. PIPERACILLIN SODIUM\TAZOBACTAM SODIUM [Concomitant]
     Active Substance: PIPERACILLIN SODIUM\TAZOBACTAM SODIUM
     Indication: Product used for unknown indication
     Dates: start: 20220503, end: 20220524
  3. RAMIPRIL [Concomitant]
     Active Substance: RAMIPRIL
     Indication: Product used for unknown indication
     Dates: start: 20180901, end: 20220529
  4. AMOXICILLIN\CLAVULANATE POTASSIUM [Concomitant]
     Active Substance: AMOXICILLIN\CLAVULANATE POTASSIUM
     Indication: Product used for unknown indication
     Dates: start: 20220214, end: 20220220
  5. CARVEDILOL [Concomitant]
     Active Substance: CARVEDILOL
     Indication: Product used for unknown indication
     Dates: start: 20200728, end: 20220529
  6. FUROSEMIDE [Concomitant]
     Active Substance: FUROSEMIDE
     Indication: Product used for unknown indication
     Dates: start: 20210926, end: 20220529
  7. CEFTRIAXONE [Concomitant]
     Active Substance: CEFTRIAXONE
     Indication: Product used for unknown indication
     Dates: start: 20220304, end: 20220307
  8. CEFTRIAXONE [Concomitant]
     Active Substance: CEFTRIAXONE
     Indication: Product used for unknown indication
     Dates: start: 20220423, end: 20220428
  9. TERLIPRESSIN [Concomitant]
     Active Substance: TERLIPRESSIN
     Indication: Product used for unknown indication
     Dates: start: 20220304, end: 20220308
  10. TERLIPRESSIN [Concomitant]
     Active Substance: TERLIPRESSIN
     Indication: Product used for unknown indication
     Dates: start: 20220504, end: 20220511
  11. TERLIPRESSIN [Concomitant]
     Active Substance: TERLIPRESSIN
     Indication: Product used for unknown indication
     Dates: start: 20220421, end: 20220428

REACTIONS (11)
  - Alcoholic liver disease [Fatal]
  - Ascites [Recovered/Resolved with Sequelae]
  - Gastrointestinal haemorrhage [Fatal]
  - Thoracic cavity drainage [Recovered/Resolved with Sequelae]
  - SARS-CoV-2 test positive [Fatal]
  - Fixed bowel loop [Unknown]
  - Prostatic disorder [Unknown]
  - Pleural effusion [Unknown]
  - Hepatic lesion [Unknown]
  - Malignant ascites [Unknown]
  - Hepatitis A [Unknown]

NARRATIVE: CASE EVENT DATE: 20210919
